FAERS Safety Report 5475545-6 (Version None)
Quarter: 2007Q4

REPORT INFORMATION
  Report Type: 
  Country: None (occurrence: None)
  Receive Date: 20071003
  Receipt Date: 20061011
  Transmission Date: 20080405
  Serious: No
  Sender: FDA-Public Use
  Company Number: US-KINGPHARMUSA00001-K200601298

PATIENT

DRUGS (2)
  1. SONATA [Suspect]
     Indication: INSOMNIA
     Dosage: 1 CAPSULE, QHS
  2. SONATA [Suspect]
     Dosage: 2 CAPSULES, QHS

REACTIONS (1)
  - DRUG INEFFECTIVE [None]
